FAERS Safety Report 6078346-3 (Version None)
Quarter: 2009Q1

REPORT INFORMATION
  Report Type: 
  Country: None (occurrence: None)
  Receive Date: 20090213
  Receipt Date: 20090129
  Transmission Date: 20090719
  Serious: Yes (Hospitalization, Other)
  Sender: FDA-Public Use
  Company Number: NO-GENENTECH-272852

PATIENT
  Sex: Male
  Weight: 28 kg

DRUGS (7)
  1. XOLAIR [Suspect]
     Indication: ASTHMA
     Dosage: 150 MG, UNK
     Route: 058
     Dates: start: 20080822
  2. VENTOLIN [Concomitant]
     Indication: DRUG USE FOR UNKNOWN INDICATION
  3. AIROMIR [Concomitant]
     Indication: DRUG USE FOR UNKNOWN INDICATION
  4. ATROVENT [Concomitant]
     Indication: DRUG USE FOR UNKNOWN INDICATION
     Dosage: 0.125 MG, UNK
  5. PULMICORT-100 [Concomitant]
     Indication: DRUG USE FOR UNKNOWN INDICATION
     Dosage: 800 MG, UNK
  6. SEREVENT [Concomitant]
     Indication: DRUG USE FOR UNKNOWN INDICATION
     Dosage: 25 A?G, UNK
  7. SINGULAIR [Concomitant]
     Indication: DRUG USE FOR UNKNOWN INDICATION
     Dosage: 10 MG, UNK

REACTIONS (4)
  - DYSPNOEA [None]
  - OROPHARYNGEAL PAIN [None]
  - RASH [None]
  - URTICARIA [None]
